FAERS Safety Report 5674933-2 (Version None)
Quarter: 2008Q2

REPORT INFORMATION
  Report Type: 
  Country: None (occurrence: None)
  Receive Date: 20080303
  Receipt Date: 20071120
  Transmission Date: 20081010
  Serious: Yes (Disabling)
  Sender: FDA-Public Use
  Company Number: RB-8593-2007

PATIENT
  Age: 40 Year
  Sex: Male

DRUGS (2)
  1. SUBOXONE [Suspect]
     Indication: DRUG DEPENDENCE
     Dosage: 16 MG SUBLINGUAL
     Route: 060
     Dates: start: 20061101
  2. PREDNISONE TAB [Concomitant]

REACTIONS (1)
  - DEAFNESS [None]
